FAERS Safety Report 9319427 (Version 1)
Quarter: 2013Q2

REPORT INFORMATION
  Report Type: Spontaneous
  Country: US (occurrence: US)
  Receive Date: 20130530
  Receipt Date: 20130530
  Transmission Date: 20140414
  Serious: Yes (Hospitalization)
  Sender: FDA-Public Use
  Company Number: US-GLAXOSMITHKLINE-A0979559A

PATIENT
  Age: 69 Year
  Sex: Female

DRUGS (4)
  1. FLOLAN [Suspect]
     Indication: COR PULMONALE CHRONIC
     Dosage: 24NGKM CONTINUOUS
     Route: 042
     Dates: start: 20100201
  2. UNSPECIFIED DRUG [Concomitant]
  3. EYE DROPS [Concomitant]
  4. ADCIRCA [Concomitant]

REACTIONS (4)
  - Clostridium difficile infection [Unknown]
  - Diarrhoea [Unknown]
  - Infusion site rash [Unknown]
  - Rash [Unknown]
